FAERS Safety Report 23084133 (Version 2)
Quarter: 2023Q4

REPORT INFORMATION
  Report Type: Report from Study
  Country: US (occurrence: US)
  Receive Date: 20231019
  Receipt Date: 20231206
  Transmission Date: 20240109
  Serious: Yes (Hospitalization)
  Sender: FDA-Public Use
  Company Number: US-ARGENX-2023-ARGX-US000278

PATIENT

DRUGS (1)
  1. VYVGART [Suspect]
     Active Substance: EFGARTIGIMOD ALFA-FCAB
     Indication: Product used for unknown indication
     Dosage: UNK
     Route: 042

REACTIONS (8)
  - Hypoxia [Unknown]
  - Myasthenia gravis crisis [Unknown]
  - Myasthenia gravis [Not Recovered/Not Resolved]
  - Pneumonia [Unknown]
  - Pneumonia [Recovering/Resolving]
  - Abnormal behaviour [Recovered/Resolved]
  - Dehydration [Recovered/Resolved]
  - Therapy cessation [Unknown]
